FAERS Safety Report 17696710 (Version 2)
Quarter: 2020Q2

REPORT INFORMATION
  Report Type: Report from Study
  Country: None (occurrence: GB)
  Receive Date: 20200423
  Receipt Date: 20200616
  Transmission Date: 20200714
  Serious: Yes (Other)
  Sender: FDA-Public Use
  Company Number: GB-US WORLDMEDS, LLC-USW202002-000372

PATIENT
  Age: 75 Year
  Sex: Male

DRUGS (13)
  1. APOMORPHINE HYDROCHLORIDE [Suspect]
     Active Substance: APOMORPHINE HYDROCHLORIDE
     Route: 058
     Dates: start: 20190325, end: 20200529
  2. STALEVO [Concomitant]
     Active Substance: CARBIDOPA\ENTACAPONE\LEVODOPA
     Indication: PARKINSON^S DISEASE
     Dosage: 100 SIX TIMES A DAY. 6AM, 9AM, 12PM, 3PM, 6PM, 9PM
  3. ASPIRIN. [Concomitant]
     Active Substance: ASPIRIN
  4. GLIMEPIRIDE. [Concomitant]
     Active Substance: GLIMEPIRIDE
  5. FUROSEMIDE. [Concomitant]
     Active Substance: FUROSEMIDE
  6. APOMORPHINE HYDROCHLORIDE [Suspect]
     Active Substance: APOMORPHINE HYDROCHLORIDE
     Indication: PARKINSON^S DISEASE
     Route: 058
     Dates: start: 20190325, end: 20200529
  7. OMEPRAZOLE. [Concomitant]
     Active Substance: OMEPRAZOLE
  8. TAMSULOSIN [Concomitant]
     Active Substance: TAMSULOSIN
  9. SIMVASTATIN. [Concomitant]
     Active Substance: SIMVASTATIN
  10. RASAGALINE [Concomitant]
     Active Substance: RASAGILINE
     Indication: PARKINSON^S DISEASE
  11. BISOPROLOL [Concomitant]
     Active Substance: BISOPROLOL
  12. PRAMIPEXOLE. [Concomitant]
     Active Substance: PRAMIPEXOLE
     Indication: PARKINSON^S DISEASE
  13. DIAZEPAM. [Concomitant]
     Active Substance: DIAZEPAM

REACTIONS (4)
  - Skin discolouration [Not Recovered/Not Resolved]
  - Necrosis [Not Recovered/Not Resolved]
  - Administration site nodule [Not Recovered/Not Resolved]
  - Injection site joint erythema [Not Recovered/Not Resolved]
